FAERS Safety Report 12302624 (Version 1)
Quarter: 2016Q2

REPORT INFORMATION
  Report Type: Spontaneous
  Country: US (occurrence: US)
  Receive Date: 20160425
  Receipt Date: 20160425
  Transmission Date: 20160815
  Serious: No
  Sender: FDA-Public Use
  Company Number: US-SA-2015SA158544

PATIENT
  Age: 34 Year
  Sex: Female

DRUGS (1)
  1. LOVENOX [Suspect]
     Active Substance: ENOXAPARIN SODIUM
     Indication: DEEP VEIN THROMBOSIS
     Dosage: TAKEN FROM- A COUPLE OF DAYS AGO

REACTIONS (5)
  - Feeling cold [Unknown]
  - Pyrexia [Unknown]
  - Muscular weakness [Unknown]
  - Pain [Unknown]
  - Feeling hot [Unknown]
